FAERS Safety Report 8010508-8 (Version None)
Quarter: 2011Q4

REPORT INFORMATION
  Report Type: 
  Country: None (occurrence: None)
  Receive Date: 20111222
  Receipt Date: 20111213
  Transmission Date: 20120403
  Serious: Yes (Hospitalization)
  Sender: FDA-Public Use
  Company Number: 2011S1000116

PATIENT
  Sex: Male

DRUGS (1)
  1. KRYSTEXXA [Suspect]
     Indication: GOUT
     Dosage: 8 MG;X1;IV
     Route: 042
     Dates: start: 20111201, end: 20111201

REACTIONS (4)
  - CEREBROVASCULAR ACCIDENT [None]
  - GOUT [None]
  - CHEST PAIN [None]
  - CONDITION AGGRAVATED [None]
